FAERS Safety Report 7141877-9 (Version None)
Quarter: 2010Q4

REPORT INFORMATION
  Report Type: 
  Country: None (occurrence: None)
  Receive Date: 20101207
  Receipt Date: 20101129
  Transmission Date: 20110411
  Serious: Yes (Other)
  Sender: FDA-Public Use
  Company Number: JP-ROCHE-745979

PATIENT
  Sex: Female
  Weight: 54 kg

DRUGS (22)
  1. AVASTIN [Suspect]
     Indication: COLON CANCER METASTATIC
     Route: 041
     Dates: start: 20081126, end: 20081126
  2. AVASTIN [Suspect]
     Route: 041
     Dates: start: 20081210, end: 20081210
  3. AVASTIN [Suspect]
     Route: 041
     Dates: start: 20090302
  4. DECADRON [Suspect]
     Route: 042
     Dates: start: 20090302
  5. VOLTAREN [Suspect]
     Route: 048
  6. ISOVORIN [Concomitant]
     Route: 041
     Dates: start: 20081126, end: 20081126
  7. ISOVORIN [Concomitant]
     Route: 041
     Dates: start: 20081210, end: 20081210
  8. ISOVORIN [Concomitant]
     Route: 041
     Dates: start: 20090302
  9. 5-FU [Concomitant]
     Route: 040
     Dates: start: 20081126, end: 20081126
  10. 5-FU [Concomitant]
     Route: 040
     Dates: start: 20081126
  11. 5-FU [Concomitant]
     Route: 040
     Dates: start: 20081210, end: 20081210
  12. 5-FU [Concomitant]
     Route: 040
     Dates: start: 20081210
  13. 5-FU [Concomitant]
     Route: 040
     Dates: start: 20090302
  14. 5-FU [Concomitant]
     Route: 040
     Dates: start: 20090302
  15. ELPLAT [Concomitant]
     Route: 041
     Dates: start: 20081126, end: 20081126
  16. ELPLAT [Concomitant]
     Route: 041
     Dates: start: 20081210, end: 20081210
  17. ELPLAT [Concomitant]
     Route: 041
     Dates: start: 20090302
  18. KYTRIL [Concomitant]
     Route: 042
     Dates: start: 20090302
  19. OXYCONTIN [Concomitant]
     Route: 048
  20. SOLANAX [Concomitant]
     Route: 048
  21. GASTER D [Concomitant]
     Route: 048
  22. PURSENNID [Concomitant]
     Route: 048

REACTIONS (1)
  - OSTEONECROSIS OF JAW [None]
